FAERS Safety Report 7220196-6 (Version None)
Quarter: 2011Q1

REPORT INFORMATION
  Report Type: 
  Country: None (occurrence: None)
  Receive Date: 20110111
  Receipt Date: 20110106
  Transmission Date: 20110831
  Serious: Yes (Death, Life-Threatening, Hospitalization, Other)
  Sender: FDA-Public Use
  Company Number: US-AMGEN-KDC440300

PATIENT
  Age: 69 Year
  Sex: Male

DRUGS (3)
  1. ETANERCEPT [Suspect]
     Indication: GRAFT VERSUS HOST DISEASE
     Dosage: UNK UNK, UNK
     Dates: start: 20100618
  2. SIROLIMUS [Concomitant]
  3. STEROID ANTIBACTERIALS [Concomitant]

REACTIONS (6)
  - CYSTITIS HAEMORRHAGIC [None]
  - DEHYDRATION [None]
  - NAUSEA [None]
  - VOMITING [None]
  - ASTHENIA [None]
  - PYREXIA [None]
